FAERS Safety Report 7093581-3 (Version None)
Quarter: 2010Q4

REPORT INFORMATION
  Report Type: 
  Country: None (occurrence: None)
  Receive Date: 20101110
  Receipt Date: 20101103
  Transmission Date: 20110411
  Serious: Yes (Life-Threatening, Hospitalization)
  Sender: FDA-Public Use
  Company Number: CH-ROCHE-731401

PATIENT
  Sex: Female
  Weight: 71 kg

DRUGS (8)
  1. ACTEMRA [Suspect]
     Indication: POLYARTHRITIS
     Dosage: FORM:INFUSION
     Route: 042
     Dates: start: 20091214
  2. ACTEMRA [Suspect]
     Dosage: DRUG DISCONTINUED ON 30 SEP 2010
     Route: 042
     Dates: start: 20100913, end: 20100913
  3. ACTEMRA [Suspect]
     Route: 042
     Dates: start: 20100816, end: 20100816
  4. ACTEMRA [Suspect]
     Route: 042
     Dates: start: 20100719, end: 20100719
  5. ACTEMRA [Suspect]
     Route: 042
     Dates: start: 20100511, end: 20100511
  6. ARAVA [Concomitant]
     Indication: POLYARTHRITIS
     Route: 048
     Dates: start: 20060308
  7. SEREVENT [Concomitant]
     Dosage: DOSE: 2 DAILY
     Route: 055
     Dates: start: 20020101
  8. DIOVAN HCT [Concomitant]
     Dosage: STRENGTH : 92.5 (80/12.5)
     Route: 048

REACTIONS (2)
  - PNEUMONIA [None]
  - PULMONARY EMBOLISM [None]
